FAERS Safety Report 7005205-1 (Version None)
Quarter: 2010Q3

REPORT INFORMATION
  Report Type: 
  Country: None (occurrence: None)
  Receive Date: 20100920
  Receipt Date: 20100920
  Transmission Date: 20110219
  Serious: Yes (Hospitalization)
  Sender: FDA-Public Use
  Company Number: None

PATIENT
  Age: 61 Year
  Sex: Male
  Weight: 99.79 kg

DRUGS (2)
  1. ERGOCALCIFEROL [Suspect]
     Indication: VITAMIN D
     Dosage: 50000 IU QWEEK PO
     Route: 048
     Dates: start: 20100119
  2. ERGOCALCIFEROL [Suspect]
     Indication: VITAMIN SUPPLEMENTATION
     Dosage: 50000 IU QWEEK PO
     Route: 048
     Dates: start: 20100119

REACTIONS (6)
  - ALANINE AMINOTRANSFERASE INCREASED [None]
  - ASPARTATE AMINOTRANSFERASE INCREASED [None]
  - ATRIAL FIBRILLATION [None]
  - BLOOD CREATININE INCREASED [None]
  - HYPERVITAMINOSIS D [None]
  - INAPPROPRIATE SCHEDULE OF DRUG ADMINISTRATION [None]
